FAERS Safety Report 9338832 (Version 1)
Quarter: 2013Q2

REPORT INFORMATION
  Report Type: Spontaneous
  Country: US (occurrence: None)
  Receive Date: 20130606
  Receipt Date: 20130606
  Transmission Date: 20140414
  Serious: Yes (Death)
  Sender: FDA-Public Use
  Company Number: None

PATIENT
  Age: 71 Year
  Sex: Male

DRUGS (2)
  1. PLERIXAFOR [Suspect]
     Indication: MYELODYSPLASTIC SYNDROME
     Dosage: 560MG/M2, DAYS 1-5, IV
     Route: 042
     Dates: start: 20130415
  2. AZACITIDINE [Suspect]
     Indication: MYELODYSPLASTIC SYNDROME
     Dosage: 75GM/M2, DAYS 1-5, IV
     Route: 042
     Dates: start: 20130415

REACTIONS (2)
  - Leukaemia [None]
  - Malignant neoplasm progression [None]
